FAERS Safety Report 20748310 (Version 5)
Quarter: 2022Q3

REPORT INFORMATION
  Report Type: Report from Study
  Country: PL (occurrence: PL)
  Receive Date: 20220426
  Receipt Date: 20220728
  Transmission Date: 20221026
  Serious: Yes (Hospitalization, Other)
  Sender: FDA-Public Use
  Company Number: PL-CELGENE-POL-20220203483

PATIENT
  Age: 71 Year
  Sex: Female
  Weight: 92 kg

DRUGS (31)
  1. LENALIDOMIDE [Suspect]
     Active Substance: LENALIDOMIDE
     Indication: Plasma cell myeloma
     Route: 048
     Dates: start: 20201213, end: 20220116
  2. LENALIDOMIDE [Suspect]
     Active Substance: LENALIDOMIDE
     Route: 048
  3. DEXAMETHASONE [Suspect]
     Active Substance: DEXAMETHASONE
     Indication: Plasma cell myeloma
     Dosage: FREQUENCY TEXT: NOT PROVIDED
     Route: 048
     Dates: start: 20211213, end: 20220114
  4. BORTEZOMIB [Suspect]
     Active Substance: BORTEZOMIB
     Indication: Plasma cell myeloma
     Dosage: 1.04 ML
     Route: 058
     Dates: start: 20211213, end: 20220113
  5. CILTACABTAGENE AUTOLEUCEL [Suspect]
     Active Substance: CILTACABTAGENE AUTOLEUCEL
     Indication: Plasma cell myeloma
     Route: 065
  6. GLUCOPHAGE [Concomitant]
     Active Substance: METFORMIN HYDROCHLORIDE
     Indication: Type 2 diabetes mellitus
     Route: 065
  7. EUTHYROX [Concomitant]
     Active Substance: LEVOTHYROXINE SODIUM
     Indication: Hypothyroidism
     Dosage: 1 IN 1 D
     Route: 065
  8. EUTHYROX [Concomitant]
     Active Substance: LEVOTHYROXINE SODIUM
     Dosage: 1 IN 1 D
  9. EUTHYROX [Concomitant]
     Active Substance: LEVOTHYROXINE SODIUM
     Dosage: 1 IN 1 D
     Route: 065
     Dates: start: 20100101
  10. EUTHYROX [Concomitant]
     Active Substance: LEVOTHYROXINE SODIUM
     Dosage: 1 IN 1 D
     Route: 065
  11. ACARD [Concomitant]
     Indication: Prophylaxis
     Dosage: 1 IN 1 D
     Route: 065
  12. ACARD [Concomitant]
     Indication: Ischaemic stroke
     Dosage: 75 MG
  13. ACARD [Concomitant]
     Dosage: 1 IN 1 D
     Route: 065
     Dates: start: 20100101
  14. ACARD [Concomitant]
     Dosage: 75 MG
  15. PRITOR [Concomitant]
     Indication: Hypertension
     Dosage: 1 IN 1 D
     Route: 065
  16. ATORVASTATIN [Concomitant]
     Active Substance: ATORVASTATIN
     Indication: Hyperlipidaemia
     Dosage: 1 IN 1 D
     Route: 065
     Dates: start: 20180101
  17. INDAPAMIDE [Concomitant]
     Active Substance: INDAPAMIDE
     Indication: Hypertension
     Dosage: 1 IN 1 D
     Route: 065
     Dates: start: 20180101
  18. EPLERENONE [Concomitant]
     Active Substance: EPLERENONE
     Indication: Hypertension
     Dosage: 1 IN 1 D
     Route: 065
  19. EPLERENONE [Concomitant]
     Active Substance: EPLERENONE
     Dosage: 1 IN 1 D
     Route: 065
     Dates: start: 20180101
  20. ACYCLOVIR [Concomitant]
     Active Substance: ACYCLOVIR
     Indication: Prophylaxis
     Dosage: 2 IN 1 D
     Route: 065
     Dates: start: 20211213
  21. ACYCLOVIR [Concomitant]
     Active Substance: ACYCLOVIR
     Indication: Bone pain
     Dosage: 3 IN 1 D
     Dates: start: 20220103
  22. NEOPARINE [Concomitant]
     Indication: Prophylaxis
     Dosage: 1 IN 1 D
     Route: 058
     Dates: start: 20220103
  23. ACETAMINOPHEN [Concomitant]
     Active Substance: ACETAMINOPHEN
     Indication: Bone pain
     Dosage: 3 IN 1 D
     Route: 065
  24. TRAMADOL [Concomitant]
     Active Substance: TRAMADOL
     Indication: Bone pain
     Dosage: 3 IN 1 D
     Route: 065
     Dates: start: 20220103
  25. TRAMADOL [Concomitant]
     Active Substance: TRAMADOL
     Dosage: 3 IN 1 D
  26. TRAMADOL [Concomitant]
     Active Substance: TRAMADOL
     Dosage: 150 MILLIGRAM
     Route: 065
     Dates: start: 20220103
  27. TRAMADOL [Concomitant]
     Active Substance: TRAMADOL
     Dosage: 3 IN 1 D
  28. INDAPAMIDE [Concomitant]
     Active Substance: INDAPAMIDE
     Indication: Hypertension
     Dosage: 1 IN 1 D
     Route: 065
     Dates: start: 20180101
  29. ACYCLOVIR [Concomitant]
     Active Substance: ACYCLOVIR
     Indication: Prophylaxis
     Dosage: 800 MILLIGRAM
     Route: 065
     Dates: start: 20211213
  30. PRITOR [Concomitant]
     Indication: Hypertension
     Dosage: 1IN 1 D
     Route: 065
     Dates: start: 20180101
  31. ACETAMINOPHEN [Concomitant]
     Active Substance: ACETAMINOPHEN
     Indication: Bone pain
     Dosage: 3 IN 1 D
     Route: 065
     Dates: start: 20211210

REACTIONS (1)
  - Transient ischaemic attack [Recovered/Resolved]

NARRATIVE: CASE EVENT DATE: 20220119
